FAERS Safety Report 25713142 (Version 3)
Quarter: 2025Q4

REPORT INFORMATION
  Report Type: Spontaneous
  Country: US (occurrence: US)
  Receive Date: 20250822
  Receipt Date: 20251008
  Transmission Date: 20260118
  Serious: Yes (Hospitalization, Other)
  Sender: APOTEX
  Company Number: US-APOTEX-2025AP011821

PATIENT
  Sex: Male

DRUGS (13)
  1. DEXAMETHASONE [Suspect]
     Active Substance: DEXAMETHASONE
     Indication: Hormone-refractory prostate cancer
     Dosage: 1.5 MILLIGRAM
     Route: 048
     Dates: start: 20250603
  2. FLUDROCORTISONE [Suspect]
     Active Substance: FLUDROCORTISONE
     Indication: Hormone-refractory prostate cancer
     Dosage: 0.15 MILLIGRAM
     Route: 048
     Dates: start: 20250603
  3. PROZAC [Concomitant]
     Active Substance: FLUOXETINE HYDROCHLORIDE
     Indication: Depression
     Dosage: 80 MILLIGRAM, QD
     Route: 048
     Dates: start: 2016
  4. VITAMINS [Concomitant]
     Active Substance: VITAMINS
     Indication: Supplementation therapy
     Dosage: 1 DOSAGE FORM, QD
     Route: 048
     Dates: start: 2016
  5. BENICAR [Concomitant]
     Active Substance: OLMESARTAN MEDOXOMIL
     Indication: Essential hypertension
     Dosage: 20 MILLIGRAM, QD
     Route: 048
     Dates: start: 2018, end: 20250707
  6. IBUPROFEN [Concomitant]
     Active Substance: IBUPROFEN
     Indication: Arthralgia
     Dosage: 100 MILLIGRAM, PRN
     Route: 048
     Dates: start: 2021
  7. IBUPROFEN [Concomitant]
     Active Substance: IBUPROFEN
     Indication: Joint stiffness
  8. DESYREL [Concomitant]
     Active Substance: TRAZODONE HYDROCHLORIDE
     Indication: Obstructive sleep apnoea syndrome
     Dosage: 50 MILLIGRAM, Q.H.S.
     Route: 048
     Dates: start: 2023
  9. OZEMPIC [Concomitant]
     Active Substance: SEMAGLUTIDE
     Indication: Weight decreased
     Dosage: 2 MILLIGRAM, Q.WK.
     Route: 058
     Dates: start: 202412, end: 20250626
  10. HYDROCHLOROTHIAZIDE [Concomitant]
     Active Substance: HYDROCHLOROTHIAZIDE
     Indication: Essential hypertension
     Dosage: 12.5 MILLIGRAM, QD
     Route: 048
     Dates: start: 20241220, end: 20250725
  11. NORCO [Concomitant]
     Active Substance: ACETAMINOPHEN\HYDROCODONE BITARTRATE
     Indication: Arthralgia
     Dosage: 5/325 MILLIGRAM EVERY 4-6 HOURS
     Route: 048
     Dates: start: 20250113
  12. NORCO [Concomitant]
     Active Substance: ACETAMINOPHEN\HYDROCODONE BITARTRATE
     Indication: Joint stiffness
  13. OLMESARTAN [Concomitant]
     Active Substance: OLMESARTAN
     Indication: Hypertension
     Dosage: 5 MILLIGRAM, QD
     Route: 048
     Dates: start: 20250710, end: 20250721

REACTIONS (2)
  - Joint effusion [Recovered/Resolved with Sequelae]
  - Arthritis bacterial [Recovering/Resolving]

NARRATIVE: CASE EVENT DATE: 20250727
